FAERS Safety Report 9862877 (Version 1)
Quarter: 2014Q1

REPORT INFORMATION
  Report Type: Report from Study
  Country: MX (occurrence: MX)
  Receive Date: 20140203
  Receipt Date: 20140203
  Transmission Date: 20141002
  Serious: Yes (Other)
  Sender: FDA-Public Use
  Company Number: PHHY2014MX008772

PATIENT
  Age: 59 Year
  Sex: Female

DRUGS (5)
  1. ONBREZ [Suspect]
     Indication: BRONCHIECTASIS
     Dosage: 1 (UNK), DAILY
     Dates: start: 2012
  2. ONBREZ [Suspect]
     Indication: OFF LABEL USE
  3. MIFLONIDE [Suspect]
     Indication: BRONCHIECTASIS
     Dosage: 2 DF, DAILY
     Route: 055
  4. MIFLONIDE [Suspect]
     Dosage: 3 DF, DAILY (FOR 5 DAYS ONLY)
     Route: 055
     Dates: end: 201311
  5. SPIRIVA [Concomitant]
     Indication: BRONCHIECTASIS
     Dosage: 1 (UNK), DAILY
     Dates: start: 2008

REACTIONS (3)
  - Bronchial obstruction [Not Recovered/Not Resolved]
  - Influenza [Not Recovered/Not Resolved]
  - Cough [Not Recovered/Not Resolved]
